FAERS Safety Report 19227938 (Version 1)
Quarter: 2021Q2

REPORT INFORMATION
  Report Type: Spontaneous
  Country: US (occurrence: US)
  Receive Date: 20210506
  Receipt Date: 20210506
  Transmission Date: 20210717
  Serious: No
  Sender: FDA-Public Use
  Company Number: US-ROCHE-2715969

PATIENT
  Sex: Male

DRUGS (8)
  1. LOSARTAN POTASSIUM. [Concomitant]
     Active Substance: LOSARTAN POTASSIUM
  2. TRAVATAN Z [Concomitant]
     Active Substance: TRAVOPROST
  3. PANTOPRAZOLE SODIUM. [Concomitant]
     Active Substance: PANTOPRAZOLE SODIUM
  4. ESBRIET [Suspect]
     Active Substance: PIRFENIDONE
     Indication: IDIOPATHIC PULMONARY FIBROSIS
     Dosage: TAKE 1 TABLET BY MOUTH 3 TIMES PER DAY AT SAME TIME EACH DAY
     Route: 048
  5. FINASTERIDE. [Concomitant]
     Active Substance: FINASTERIDE
  6. DORZOLAMIDE HCL [Concomitant]
     Active Substance: DORZOLAMIDE HYDROCHLORIDE
  7. HYDROCHLOROTHIAZIDE. [Concomitant]
     Active Substance: HYDROCHLOROTHIAZIDE
  8. TIMOLOL MALEATE. [Concomitant]
     Active Substance: TIMOLOL MALEATE

REACTIONS (2)
  - Product dose omission in error [Unknown]
  - No adverse event [Unknown]
